FAERS Safety Report 14471903 (Version 3)
Quarter: 2018Q1

REPORT INFORMATION
  Report Type: Report from Study
  Country: US (occurrence: US)
  Receive Date: 20180131
  Receipt Date: 20180221
  Transmission Date: 20180509
  Serious: Yes (Hospitalization)
  Sender: FDA-Public Use
  Company Number: US-BAUSCH-BL-2018-002643

PATIENT
  Age: 68 Year
  Sex: Female
  Weight: 78.54 kg

DRUGS (2)
  1. XIFAXAN [Suspect]
     Active Substance: RIFAXIMIN
     Route: 048
  2. XIFAXAN [Suspect]
     Active Substance: RIFAXIMIN
     Indication: HEPATIC CIRRHOSIS
     Route: 048
     Dates: start: 2016

REACTIONS (2)
  - Hysterectomy [Recovering/Resolving]
  - Bladder disorder [Recovering/Resolving]

NARRATIVE: CASE EVENT DATE: 20180122
